FAERS Safety Report 14860559 (Version 1)
Quarter: 2018Q2

REPORT INFORMATION
  Report Type: Other
  Country: CA (occurrence: CA)
  Receive Date: 20180508
  Receipt Date: 20180508
  Transmission Date: 20180711
  Serious: Yes (Life-Threatening, Other)
  Sender: FDA-Public Use
  Company Number: CA-APOTEX-2018AP011947

PATIENT
  Sex: Female

DRUGS (2)
  1. MIDAZOLAM [Suspect]
     Active Substance: MIDAZOLAM HYDROCHLORIDE
     Indication: PALLIATIVE CARE
     Dosage: UNK
     Route: 065
  2. HYDROMORPHONE HP [Suspect]
     Active Substance: HYDROMORPHONE HYDROCHLORIDE
     Indication: PALLIATIVE CARE
     Dosage: 10 MG, UNK
     Route: 065

REACTIONS (2)
  - Respiratory distress [Unknown]
  - Drug dispensing error [Unknown]
